FAERS Safety Report 18627693 (Version 1)
Quarter: 2020Q4

REPORT INFORMATION
  Report Type: Spontaneous
  Country: US (occurrence: US)
  Receive Date: 20201216
  Receipt Date: 20201216
  Transmission Date: 20210114
  Serious: No
  Sender: FDA-Public Use
  Company Number: None

PATIENT
  Age: 74 Year
  Sex: Male

DRUGS (1)
  1. RITUXIMAB-PVVR [Suspect]
     Active Substance: RITUXIMAB-PVVR
     Indication: B-CELL LYMPHOMA
     Dosage: ?          OTHER FREQUENCY:ONE TIME DOSE;?
     Route: 042

REACTIONS (3)
  - Chills [None]
  - Hypertension [None]
  - Chest discomfort [None]

NARRATIVE: CASE EVENT DATE: 20201130
